FAERS Safety Report 11927169 (Version 7)
Quarter: 2019Q1

REPORT INFORMATION
  Report Type: Report from Study
  Country: CO (occurrence: CO)
  Receive Date: 20160119
  Receipt Date: 20190226
  Transmission Date: 20190417
  Serious: Yes (Hospitalization, Other)
  Sender: FDA-Public Use
  Company Number: PHHY2016CO004628

PATIENT
  Age: 41 Year
  Sex: Male
  Weight: 83 kg

DRUGS (5)
  1. CYCLOSPORINE. [Concomitant]
     Active Substance: CYCLOSPORINE
     Indication: PRODUCT USED FOR UNKNOWN INDICATION
     Route: 065
  2. REVOLADE [Suspect]
     Active Substance: ELTROMBOPAG
     Indication: IMMUNE THROMBOCYTOPENIC PURPURA
     Dosage: 50 MG, QD
     Route: 048
     Dates: start: 20120101
  3. REVOLADE [Suspect]
     Active Substance: ELTROMBOPAG
     Dosage: 50 MG, QD
     Route: 048
  4. REVOLADE [Suspect]
     Active Substance: ELTROMBOPAG
     Dosage: 25 MG, QD
     Route: 048
  5. REVOLADE [Suspect]
     Active Substance: ELTROMBOPAG
     Dosage: 100 MG, QD
     Route: 048
     Dates: start: 2012

REACTIONS (19)
  - Movement disorder [Unknown]
  - Malaise [Unknown]
  - Tinnitus [Unknown]
  - Diarrhoea [Unknown]
  - Vision blurred [Unknown]
  - Contusion [Unknown]
  - Tooth fracture [Unknown]
  - Somnolence [Unknown]
  - Decreased immune responsiveness [Unknown]
  - Ear pain [Unknown]
  - Swelling face [Unknown]
  - Inflammation [Unknown]
  - Platelet count decreased [Unknown]
  - Gastrointestinal disorder [Unknown]
  - Circulatory collapse [Unknown]
  - Fatigue [Unknown]
  - Gingival bleeding [Unknown]
  - Influenza [Unknown]
  - Psychiatric symptom [Unknown]

NARRATIVE: CASE EVENT DATE: 20120101
